FAERS Safety Report 10592422 (Version 1)
Quarter: 2014Q4

REPORT INFORMATION
  Report Type: Spontaneous
  Country: US (occurrence: None)
  Receive Date: 20141117
  Receipt Date: 20141117
  Transmission Date: 20150529
  Serious: Yes (Hospitalization)
  Sender: FDA-Public Use
  Company Number: IMP_08149_2014

PATIENT
  Age: 74 Year
  Sex: Female

DRUGS (1)
  1. MIDODRINE [Suspect]
     Active Substance: MIDODRINE
     Indication: HYPOTENSION
     Route: 048

REACTIONS (1)
  - Stress cardiomyopathy [None]
